FAERS Safety Report 9829735 (Version 2)
Quarter: 2015Q3

REPORT INFORMATION
  Report Type: Report from Study
  Country: AR (occurrence: AR)
  Receive Date: 20140120
  Receipt Date: 20150925
  Transmission Date: 20151125
  Serious: Yes (Hospitalization, Other)
  Sender: FDA-Public Use
  Company Number: AR-BRISTOL-MYERS SQUIBB COMPANY-20013173

PATIENT
  Sex: Female

DRUGS (2)
  1. ABATACEPT [Suspect]
     Active Substance: ABATACEPT
     Indication: RHEUMATOID ARTHRITIS
     Dosage: 250 MG, Q4WK
     Route: 058
  2. ABATACEPT [Suspect]
     Active Substance: ABATACEPT
     Dosage: UNK UNK, QWK
     Route: 058
     Dates: start: 20120210

REACTIONS (2)
  - Limb operation [Recovered/Resolved]
  - Arthropathy [Recovering/Resolving]
